FAERS Safety Report 11072540 (Version 2)
Quarter: 2015Q2

REPORT INFORMATION
  Report Type: Spontaneous
  Country: JP (occurrence: None)
  Receive Date: 20150424
  Receipt Date: 20150522
  Transmission Date: 20150821
  Serious: Yes (Other)
  Sender: FDA-Public Use
  Company Number: 2015FE01294

PATIENT
  Age: 78 Year
  Sex: Male
  Weight: 64 kg

DRUGS (6)
  1. TICLOPIDINE [Concomitant]
     Active Substance: TICLOPIDINE
  2. LIVALO (PITAVASTATIN CALCIUM) [Concomitant]
  3. DIOVAN [Concomitant]
     Active Substance: VALSARTAN
  4. GONAX (DEGARELIX) POWDER AND SOLVENT FOR SOLUTION FOR INJECTION [Suspect]
     Active Substance: DEGARELIX
     Indication: PROSTATE CANCER
     Dosage: 240 MG, ONCE/SINGLE, SUBCUTANEOUS
     Route: 058
     Dates: start: 20130802, end: 20130802
  5. HARNAL (TAMSULOSIN HYDROCHLORIDE) ORODISPERSIBLE TABLET [Concomitant]
  6. FAMOTER (ACETYLSALICYLIC ACID, ALUMINIUM GLYCINATE, MAGNESIUM CARBONATE) [Concomitant]

REACTIONS (1)
  - White blood cell count decreased [None]

NARRATIVE: CASE EVENT DATE: 20131220
